FAERS Safety Report 14189770 (Version 1)
Quarter: 2017Q4

REPORT INFORMATION
  Report Type: Spontaneous
  Country: US (occurrence: US)
  Receive Date: 20171115
  Receipt Date: 20171115
  Transmission Date: 20180321
  Serious: No
  Sender: FDA-Public Use
  Company Number: US-ELI_LILLY_AND_COMPANY-US201710006936

PATIENT
  Sex: Female

DRUGS (10)
  1. ENALAPRIL [Concomitant]
     Active Substance: ENALAPRIL
     Indication: BLOOD PRESSURE ABNORMAL
     Dosage: 20 MG, DAILY
  2. DUAVEE                             /08396601/ [Concomitant]
     Indication: MENOPAUSE
     Dosage: UNK, DAILY (45 MG/20MG ONCE A DAY)
  3. VENLAFAXINE [Concomitant]
     Active Substance: VENLAFAXINE HYDROCHLORIDE
     Indication: MOOD SWINGS
  4. VASOTEC [Concomitant]
     Active Substance: ENALAPRIL MALEATE
     Indication: PRODUCT USED FOR UNKNOWN INDICATION
     Dosage: UNK, DAILY (10-20 MG ONCE A DAY)
  5. JARDIANCE [Concomitant]
     Active Substance: EMPAGLIFLOZIN
     Indication: TYPE 1 DIABETES MELLITUS
     Dosage: 25 MG, DAILY
  6. VENLAFAXINE [Concomitant]
     Active Substance: VENLAFAXINE HYDROCHLORIDE
     Indication: HOT FLUSH
     Dosage: 75 MG, DAILY
  7. HUMALOG [Suspect]
     Active Substance: INSULIN LISPRO
     Indication: TYPE 1 DIABETES MELLITUS
     Dosage: UNK, PRN (5 TIMES DAILY)
     Route: 058
  8. NOVOLOG [Suspect]
     Active Substance: INSULIN ASPART
     Indication: TYPE 1 DIABETES MELLITUS
     Dosage: UNK, UNKNOWN
     Route: 065
  9. TRESIBA [Concomitant]
     Active Substance: INSULIN DEGLUDEC
     Indication: TYPE 1 DIABETES MELLITUS
     Dosage: 24 U, EACH MORNING
  10. JANUMET [Concomitant]
     Active Substance: METFORMIN HYDROCHLORIDE\SITAGLIPTIN PHOSPHATE
     Indication: TYPE 1 DIABETES MELLITUS
     Dosage: 100 MG, DAILY

REACTIONS (5)
  - Seasonal allergy [Unknown]
  - Rash [Unknown]
  - Incorrect dose administered [Unknown]
  - Drug dose omission [Unknown]
  - Rash erythematous [Unknown]
